FAERS Safety Report 8919374 (Version 4)
Quarter: 2013Q4

REPORT INFORMATION
  Report Type: Report from Study
  Country: JP (occurrence: JP)
  Receive Date: 20121121
  Receipt Date: 20131217
  Transmission Date: 20140711
  Serious: Yes (Other)
  Sender: FDA-Public Use
  Company Number: JP-VERTEX PHARMACEUTICAL INC.-2012-024876

PATIENT
  Age: 75 Year
  Sex: Male

DRUGS (15)
  1. VX-950 (TELAPREVIR) [Suspect]
     Indication: CHRONIC HEPATITIS C
     Dosage: 2250 MG, QD
     Route: 048
     Dates: start: 20120525, end: 20120628
  2. VX-950 (TELAPREVIR) [Suspect]
     Dosage: 1500 MG, QD
     Route: 048
     Dates: start: 20120629, end: 20120705
  3. RIBAVIRIN [Suspect]
     Indication: CHRONIC HEPATITIS C
     Dosage: 600 MG, QD
     Route: 048
     Dates: start: 20120525, end: 20120614
  4. RIBAVIRIN [Suspect]
     Dosage: 400 MG, QD
     Route: 048
     Dates: start: 20120615, end: 20120712
  5. RIBAVIRIN [Suspect]
     Dosage: 200 MG, QD
     Route: 048
     Dates: start: 20120713, end: 20120719
  6. RIBAVIRIN [Suspect]
     Dosage: 400 MG, QD
     Route: 048
     Dates: start: 20120921
  7. PEGINTERFERON ALFA-2B [Concomitant]
     Dosage: 1.5 ?G/KG, QW
     Route: 058
     Dates: start: 20120525, end: 20121107
  8. TAKEPRON [Concomitant]
     Dosage: 15 MG, QD
     Route: 048
  9. GLUFAST [Concomitant]
     Dosage: 30 MG, QD
     Route: 048
  10. DIOVAN [Concomitant]
     Dosage: 80 MG, QD
     Route: 048
  11. AMLODIN [Concomitant]
     Dosage: 5 MG, QD
     Route: 048
  12. TSUMURA RIKKUNSHITO EXTRACT FINE GRANULES FOR ETHICAL USE [Concomitant]
     Dosage: 7.5 G, QD
     Route: 048
  13. CINAL [Concomitant]
     Dosage: 3 DF, QD
     Route: 048
     Dates: start: 20120525
  14. JUVELA N [Concomitant]
     Dosage: 600 MG, QD
     Route: 048
     Dates: start: 20120525
  15. PROMAC [Concomitant]
     Dosage: 150 MG, QD
     Route: 048
     Dates: start: 20120525

REACTIONS (2)
  - Melaena [Recovered/Resolved]
  - Haemoglobin decreased [Recovered/Resolved]
